FAERS Safety Report 10069106 (Version 1)
Quarter: 2014Q2

REPORT INFORMATION
  Report Type: Report from Study
  Country: US (occurrence: US)
  Receive Date: 20140409
  Receipt Date: 20140409
  Transmission Date: 20141212
  Serious: Yes (Other)
  Sender: FDA-Public Use
  Company Number: PHEH2014US006771

PATIENT
  Sex: Female

DRUGS (8)
  1. EXFORGE [Suspect]
     Dosage: UNK UKN, UNK
  2. CARVEDILOL [Concomitant]
     Dosage: 25 MG, UNK
  3. JANUVIA [Concomitant]
     Dosage: UNK UKN, UNK
  4. FUROSEMIDE [Concomitant]
     Dosage: 40 MG, UNK
  5. POTASSIUM [Concomitant]
     Dosage: UNK UKN, UNK
  6. OMEPRAZOLE [Concomitant]
     Dosage: UNK UKN, UNK
  7. ASPIRIN [Concomitant]
     Dosage: 325 UKN, UNK
  8. CENTRUM [Concomitant]
     Dosage: UNK UKN, UNK

REACTIONS (2)
  - Heart valve incompetence [Unknown]
  - Cardiac disorder [Unknown]
